FAERS Safety Report 10286224 (Version 1)
Quarter: 2014Q3

REPORT INFORMATION
  Report Type: Spontaneous
  Country: US (occurrence: None)
  Receive Date: 20140707
  Receipt Date: 20140707
  Transmission Date: 20150326
  Serious: Yes (Hospitalization, Other)
  Sender: FDA-Public Use
  Company Number: SYM-2014-22718

PATIENT
  Age: 12 Year
  Sex: Male

DRUGS (7)
  1. XENAZINE [Suspect]
     Active Substance: TETRABENAZINE
     Indication: MUSCLE SPASTICITY
     Route: 048
  2. BACLOFEN (BACLOFEN) [Concomitant]
     Active Substance: BACLOFEN
  3. DIAZEPAM (DIAZEPAM) [Concomitant]
     Active Substance: DIAZEPAM
  4. CLONAZEPAM (CLONAZEPAM) [Concomitant]
  5. CLONIDINE (CLONIDINE) [Concomitant]
     Active Substance: CLONIDINE
  6. TEGRETOL [Concomitant]
     Active Substance: CARBAMAZEPINE
  7. GABAPENTIN (GABAPENTIN) [Concomitant]
     Active Substance: GABAPENTIN

REACTIONS (1)
  - Respiratory tract infection [None]

NARRATIVE: CASE EVENT DATE: 20140514
